FAERS Safety Report 5011161-8 (Version None)
Quarter: 2006Q2

REPORT INFORMATION
  Report Type: 
  Country: None (occurrence: None)
  Receive Date: 20060523
  Receipt Date: 20060509
  Transmission Date: 20061013
  Serious: Yes (Hospitalization)
  Sender: FDA-Public Use
  Company Number: 2006RR-02265

PATIENT
  Age: 73 Year
  Sex: Female
  Weight: 33.5 kg

DRUGS (3)
  1. METFORMIN HCL [Suspect]
     Indication: DIABETES MELLITUS
     Dosage: 250 MG, BID, ORAL
     Route: 048
  2. STARLIX [Suspect]
     Indication: DIABETES MELLITUS
     Dosage: 90 MG, TID, ORAL
     Route: 048
  3. PIOGLITAZONE HCL [Suspect]
     Indication: DIABETES MELLITUS
     Dosage: 15 MG, ORAL
     Route: 048

REACTIONS (4)
  - DRUG INTERACTION [None]
  - HEPATITIS ACUTE [None]
  - HEPATITIS CHOLESTATIC [None]
  - HEPATOCELLULAR DAMAGE [None]
